FAERS Safety Report 7077519-0 (Version None)
Quarter: 2010Q4

REPORT INFORMATION
  Report Type: 
  Country: None (occurrence: None)
  Receive Date: 20101101
  Receipt Date: 20101021
  Transmission Date: 20110411
  Serious: Yes (Hospitalization)
  Sender: FDA-Public Use
  Company Number: NL-ASTRAZENECA-2010SE50009

PATIENT
  Age: 45 Year
  Sex: Female
  Weight: 105 kg

DRUGS (4)
  1. SELOKEEN ZOC [Suspect]
     Indication: HYPERTENSION
     Route: 048
     Dates: start: 20040101, end: 20080201
  2. AMARYL [Concomitant]
     Route: 048
     Dates: start: 20040101
  3. METFORMIN HCL [Concomitant]
     Route: 048
     Dates: start: 20040101
  4. SIMVASTATIN [Concomitant]
     Route: 048
     Dates: start: 20040401

REACTIONS (1)
  - ATRIOVENTRICULAR BLOCK [None]
